FAERS Safety Report 4922968-7 (Version None)
Quarter: 2006Q1

REPORT INFORMATION
  Report Type: 
  Country: None (occurrence: None)
  Receive Date: 20060224
  Receipt Date: 20060213
  Transmission Date: 20060701
  Serious: Yes (Hospitalization, Disabling)
  Sender: FDA-Public Use
  Company Number: US-MERCK-0602USA04528

PATIENT
  Sex: Female
  Weight: 68 kg

DRUGS (29)
  1. ACCUPRIL [Concomitant]
     Route: 048
  2. NEXIUM [Concomitant]
     Route: 048
  3. HEMOCYTE [Concomitant]
     Route: 048
  4. ELAVIL [Concomitant]
     Route: 048
  5. METHADONE HYDROCHLORIDE TABLETS [Concomitant]
     Route: 048
  6. K-DUR 10 [Concomitant]
     Route: 048
  7. TOPROL-XL [Concomitant]
     Route: 048
  8. NITRO [Concomitant]
     Route: 065
  9. CYCLOBENZAPRINE(WEST POINT PHARMA) [Concomitant]
     Route: 048
  10. DURAGESIC-100 [Concomitant]
     Route: 061
  11. AMARYL [Concomitant]
     Route: 048
  12. AMARYL [Concomitant]
     Route: 048
  13. CARDIZEM [Concomitant]
     Route: 048
  14. DUONEB [Concomitant]
     Route: 055
  15. XOPENEX [Concomitant]
     Route: 055
  16. VIOXX [Suspect]
     Indication: ARTHRITIS
     Route: 048
     Dates: start: 20000101, end: 20040930
  17. VIOXX [Suspect]
     Indication: HEADACHE
     Route: 048
     Dates: start: 20000101, end: 20040930
  18. EXTRA STRENGTH TYLENOL [Concomitant]
     Route: 048
  19. VITAMIN E [Concomitant]
     Route: 065
  20. IBUPROFEN [Concomitant]
     Route: 048
  21. ADVAIR DISKUS 100/50 [Concomitant]
     Indication: ASTHMA
     Route: 055
  22. ALLEGRA [Concomitant]
     Route: 048
  23. XANAX [Concomitant]
     Route: 048
  24. DARVOCET-N 50 [Concomitant]
     Indication: PAIN
     Route: 048
  25. PHENERGAN TABLETS/SUPPOSITORIES [Concomitant]
     Route: 065
  26. NASONEX [Concomitant]
  27. VYTORIN [Concomitant]
     Route: 048
  28. DYAZIDE [Concomitant]
     Route: 048
  29. SINGULAIR [Concomitant]
     Indication: ASTHMA
     Route: 048

REACTIONS (28)
  - ALOPECIA [None]
  - ANXIETY [None]
  - ASTHMA [None]
  - BIPOLAR DISORDER [None]
  - CARDIAC FAILURE CONGESTIVE [None]
  - CEREBROVASCULAR ACCIDENT [None]
  - CHEST PAIN [None]
  - COLLAPSE OF LUNG [None]
  - CYSTITIS [None]
  - DEPRESSION [None]
  - DYSPNOEA [None]
  - GENERALISED ANXIETY DISORDER [None]
  - HEADACHE [None]
  - HERNIA [None]
  - LUNG DISORDER [None]
  - MOOD SWINGS [None]
  - MYOCARDIAL INFARCTION [None]
  - NAUSEA [None]
  - OEDEMA [None]
  - OVARIAN CYST [None]
  - OVERDOSE [None]
  - PANIC ATTACK [None]
  - PHYSICAL DISABILITY [None]
  - PNEUMONIA [None]
  - PULMONARY EMBOLISM [None]
  - TACHYCARDIA [None]
  - THROMBOSIS [None]
  - ULCER [None]
